FAERS Safety Report 4635360-X (Version None)
Quarter: 2005Q2

REPORT INFORMATION
  Report Type: 
  Country: None (occurrence: None)
  Receive Date: 20050411
  Receipt Date: 20040507
  Transmission Date: 20051028
  Serious: No
  Sender: FDA-Public Use
  Company Number: 7937

PATIENT
  Age: 57 Year
  Sex: Female

DRUGS (6)
  1. PACLITAXEL [Suspect]
     Indication: RETROPERITONEAL CANCER
     Dosage: 268 MG TOTAL IV
     Route: 042
  2. CARBOPLATIN [Concomitant]
  3. DEXAMETHASONE [Concomitant]
  4. RANITIDINE [Concomitant]
  5. PROMETHAZINE HCL [Concomitant]
  6. TROPISETRON [Concomitant]

REACTIONS (7)
  - BLOOD PRESSURE DECREASED [None]
  - CHEST DISCOMFORT [None]
  - FLUSHING [None]
  - GRAND MAL CONVULSION [None]
  - INFUSION RELATED REACTION [None]
  - TONGUE BITING [None]
  - URINARY INCONTINENCE [None]
